FAERS Safety Report 4476008-7 (Version None)
Quarter: 2004Q4

REPORT INFORMATION
  Report Type: 
  Country: None (occurrence: None)
  Receive Date: 20041012
  Receipt Date: 20040928
  Transmission Date: 20050328
  Serious: Yes (Hospitalization, Other)
  Sender: FDA-Public Use
  Company Number: HQWYE462930SEP04

PATIENT
  Age: 46 Year
  Sex: Female

DRUGS (2)
  1. EFFEXOR XR [Suspect]
     Indication: DEPRESSION
     Dosage: OVERDOSE AMOUNT
  2. ADVIL [Suspect]
     Dosage: 600 MG 3X PER 1 DAY, ORAL
     Route: 048

REACTIONS (9)
  - ACCIDENTAL OVERDOSE [None]
  - BLOOD PRESSURE INCREASED [None]
  - DELIRIUM [None]
  - DISORIENTATION [None]
  - HALLUCINATION, AUDITORY [None]
  - IRRITABILITY [None]
  - LOOSE ASSOCIATIONS [None]
  - MEDICATION ERROR [None]
  - THINKING ABNORMAL [None]
